FAERS Safety Report 7579591-8 (Version None)
Quarter: 2011Q2

REPORT INFORMATION
  Report Type: 
  Country: None (occurrence: None)
  Receive Date: 20110622
  Receipt Date: 20110607
  Transmission Date: 20111010
  Serious: Yes (Hospitalization, Other)
  Sender: FDA-Public Use
  Company Number: AUR-APL-2011-03276

PATIENT
  Age: 18 Year
  Sex: Female

DRUGS (6)
  1. ADALIMUMAB (ADALIMUMAB) [Suspect]
     Indication: CROHN'S DISEASE
     Dosage: (FORTNIGHTLY INJECTIONS),
  2. SUMATRIPTAN SUCCINATE [Suspect]
     Indication: PRODUCT USED FOR UNKNOWN INDICATION
  3. CYCLOPHOSPHAMIDE [Suspect]
     Indication: TUBULOINTERSTITIAL NEPHRITIS
     Dosage: (100 MG, 1 D)
  4. SERTRALINE HYDROCHLORIDE [Suspect]
     Indication: PRODUCT USED FOR UNKNOWN INDICATION
  5. PROPRANOLOL [Suspect]
     Indication: PRODUCT USED FOR UNKNOWN INDICATION
  6. PREDNISONE [Suspect]
     Indication: TUBULOINTERSTITIAL NEPHRITIS
     Dosage: (60 MG, 1 D),

REACTIONS (7)
  - ABDOMINAL DISTENSION [None]
  - PAIN IN EXTREMITY [None]
  - GRANULOMA [None]
  - GLOMERULOSCLEROSIS [None]
  - ALOPECIA [None]
  - TUBULOINTERSTITIAL NEPHRITIS [None]
  - RENAL TUBULAR ATROPHY [None]
